FAERS Safety Report 4622304-X (Version None)
Quarter: 2005Q1

REPORT INFORMATION
  Report Type: 
  Country: None (occurrence: None)
  Receive Date: 20050328
  Receipt Date: 20050315
  Transmission Date: 20050727
  Serious: Yes (Other)
  Sender: FDA-Public Use
  Company Number: 2005047970

PATIENT

DRUGS (1)
  1. SERTRALINE (SERTRALINE) [Suspect]
     Indication: DEPRESSION
     Dosage: 100 MG (50 MG, 2 IN 1 D)

REACTIONS (2)
  - DISEASE RECURRENCE [None]
  - MYOCARDIAL ISCHAEMIA [None]
